FAERS Safety Report 4540946-7 (Version None)
Quarter: 2004Q4

REPORT INFORMATION
  Report Type: 
  Country: None (occurrence: None)
  Receive Date: 20041229
  Receipt Date: 20041216
  Transmission Date: 20050328
  Serious: Yes (Death)
  Sender: FDA-Public Use
  Company Number: 388680

PATIENT
  Sex: Male

DRUGS (5)
  1. DILATREND [Suspect]
     Indication: HYPERTENSION
     Route: 048
     Dates: start: 20041102, end: 20041111
  2. IRBESARTAN [Concomitant]
     Dates: start: 20030224, end: 20041111
  3. ASPIRIN [Concomitant]
     Dates: start: 20040428, end: 20041111
  4. AVELOX [Concomitant]
     Dates: start: 20041102, end: 20041107
  5. MUCOFOR [Concomitant]
     Dates: start: 20041102, end: 20041111

REACTIONS (1)
  - CIRCULATORY COLLAPSE [None]
